FAERS Safety Report 9998829 (Version 1)
Quarter: 2014Q1

REPORT INFORMATION
  Report Type: Spontaneous
  Country: US (occurrence: US)
  Receive Date: 20140312
  Receipt Date: 20140312
  Transmission Date: 20141002
  Serious: No
  Sender: FDA-Public Use
  Company Number: US-BIOGENIDEC-2014BI020401

PATIENT
  Age: 39 Year
  Sex: Female

DRUGS (14)
  1. TECFIDERA [Suspect]
     Indication: PRODUCT USED FOR UNKNOWN INDICATION
     Route: 048
  2. PANTOPRAZOLE [Concomitant]
  3. XANAX [Concomitant]
  4. TOPAMAX [Concomitant]
  5. AMLODIPINE [Concomitant]
  6. COUMADIN [Concomitant]
  7. DEPAKOTE [Concomitant]
  8. TRILIPIX [Concomitant]
  9. NORTRIPTYLIN [Concomitant]
  10. HYDROXYCHLOR [Concomitant]
  11. LEVOTHYROXIN [Concomitant]
  12. ZANAFLEX [Concomitant]
  13. VITAMIN D [Concomitant]
  14. HYDROCODONE SYP PE/CPM [Concomitant]

REACTIONS (4)
  - Fatigue [Unknown]
  - Flushing [Unknown]
  - Abdominal discomfort [Unknown]
  - Diarrhoea [Unknown]
